FAERS Safety Report 24212831 (Version 6)
Quarter: 2025Q2

REPORT INFORMATION
  Report Type: Report from Study
  Country: BR (occurrence: BR)
  Receive Date: 20240815
  Receipt Date: 20250601
  Transmission Date: 20250717
  Serious: Yes (Hospitalization, Other)
  Sender: TAKEDA
  Company Number: BR-TAKEDA-2022TUS066363

PATIENT
  Age: 63 Year
  Sex: Female

DRUGS (7)
  1. VEDOLIZUMAB [Suspect]
     Active Substance: VEDOLIZUMAB
     Indication: Crohn^s disease
  2. VEDOLIZUMAB [Suspect]
     Active Substance: VEDOLIZUMAB
     Indication: Colitis ulcerative
     Dosage: 300 MILLIGRAM, Q4WEEKS
  3. VITAMIN D [Concomitant]
     Active Substance: VITAMIN D NOS
  4. Cardo Mariano [Concomitant]
  5. LOSARTAN POTASSIUM [Concomitant]
     Active Substance: LOSARTAN POTASSIUM
     Indication: Blood pressure management
     Dosage: 50 MILLIGRAM, QD
  6. HYDROCHLOROTHIAZIDE [Concomitant]
     Active Substance: HYDROCHLOROTHIAZIDE
     Indication: Blood pressure management
     Dosage: 25 MILLIGRAM, QD
  7. PIOGLITAZONE HYDROCHLORIDE [Concomitant]
     Active Substance: PIOGLITAZONE HYDROCHLORIDE

REACTIONS (23)
  - Intestinal fistula [Not Recovered/Not Resolved]
  - Skin cancer [Not Recovered/Not Resolved]
  - Pain [Recovered/Resolved]
  - Intestinal stenosis [Not Recovered/Not Resolved]
  - Nasal cavity cancer [Not Recovered/Not Resolved]
  - Hepatomegaly [Unknown]
  - Suspected COVID-19 [Unknown]
  - Fistula [Unknown]
  - Inappropriate schedule of product administration [Recovered/Resolved]
  - Weight increased [Unknown]
  - Gastrointestinal inflammation [Not Recovered/Not Resolved]
  - Product dose omission issue [Unknown]
  - Anxiety [Unknown]
  - Product availability issue [Unknown]
  - Intestinal fibrosis [Unknown]
  - Drug ineffective [Unknown]
  - Abdominal adhesions [Unknown]
  - Aphonia [Unknown]
  - Rhinitis [Recovered/Resolved]
  - Dysphonia [Recovering/Resolving]
  - Diarrhoea [Not Recovered/Not Resolved]
  - Limb injury [Not Recovered/Not Resolved]
  - Cough [Recovering/Resolving]

NARRATIVE: CASE EVENT DATE: 20220301
